FAERS Safety Report 5140054-0 (Version None)
Quarter: 2006Q4

REPORT INFORMATION
  Report Type: 
  Country: None (occurrence: None)
  Receive Date: 20061024
  Receipt Date: 20061004
  Transmission Date: 20070319
  Serious: Yes (Other)
  Sender: FDA-Public Use
  Company Number: US200601000909

PATIENT
  Age: 37 Year
  Sex: Male
  Weight: 111.6 kg

DRUGS (13)
  1. OLANZAPINE [Suspect]
     Indication: SCHIZOPHRENIA
     Dosage: 10 MG, DAILY (1/D), UNK
     Dates: start: 19970124, end: 20051101
  2. LOTENSIN [Concomitant]
  3. DEPAKOTE [Concomitant]
  4. PRAVACHOL [Concomitant]
  5. RANITIDINE [Concomitant]
  6. ZOCOR [Concomitant]
  7. VICODIN [Concomitant]
  8. FLEXARTAL (CARISOPRODOL) [Concomitant]
  9. NAPROXYN  /NOR/(NAPROXEN) [Concomitant]
  10. NICOTINE [Concomitant]
  11. ZANTAC [Concomitant]
  12. PRAVACHOL [Concomitant]
  13. CANNABIS (CANNABIS) [Concomitant]

REACTIONS (17)
  - ANAL FISSURE [None]
  - BLOOD CHOLESTEROL INCREASED [None]
  - BLOOD TRIGLYCERIDES INCREASED [None]
  - CERVICOBRACHIAL SYNDROME [None]
  - CONDITION AGGRAVATED [None]
  - DIABETES MELLITUS NON-INSULIN-DEPENDENT [None]
  - HAEMORRHOIDS [None]
  - HIGH DENSITY LIPOPROTEIN DECREASED [None]
  - HUMERUS FRACTURE [None]
  - HYPERLIPIDAEMIA [None]
  - LOW DENSITY LIPOPROTEIN INCREASED [None]
  - OTITIS MEDIA [None]
  - PRURITUS [None]
  - RASH ERYTHEMATOUS [None]
  - RECTAL HAEMORRHAGE [None]
  - VISION BLURRED [None]
  - WEIGHT INCREASED [None]
